FAERS Safety Report 8915453 (Version 2)
Quarter: 2013Q1

REPORT INFORMATION
  Report Type: Spontaneous
  Country: US (occurrence: US)
  Receive Date: 20121119
  Receipt Date: 20130211
  Transmission Date: 20140127
  Serious: No
  Sender: FDA-Public Use
  Company Number: US-PFIZER INC-2012288342

PATIENT
  Age: 35 Year
  Sex: Female

DRUGS (7)
  1. EFFEXOR XR [Suspect]
     Indication: MAJOR DEPRESSION
     Dosage: UNK
  2. EFFEXOR XR [Suspect]
     Indication: ANXIETY
     Dosage: 150 MG, 1X/DAY (150MG/D)
     Route: 048
     Dates: start: 201104
  3. EFFEXOR [Suspect]
     Dosage: UNK
  4. CAFFEINE [Concomitant]
     Dosage: UNK
  5. WELLBUTRIN XR [Concomitant]
     Indication: DEPRESSION
     Dosage: 150 MG IN THE MORNING
     Dates: start: 20110331
  6. METFORMIN [Concomitant]
     Indication: POLYCYSTIC OVARIES
     Dosage: 500 UNK, 3X/DAY
  7. ALDACTONE [Concomitant]
     Indication: POLYCYSTIC OVARIES
     Dosage: UNK

REACTIONS (1)
  - Paraesthesia [Recovered/Resolved]
